FAERS Safety Report 10579428 (Version 1)
Quarter: 2014Q4

REPORT INFORMATION
  Report Type: Spontaneous
  Country: GB (occurrence: GB)
  Receive Date: 20141112
  Receipt Date: 20141112
  Transmission Date: 20150529
  Serious: Yes (Other)
  Sender: FDA-Public Use
  Company Number: GB-GE HEALTHCARE MEDICAL DIAGNOSTICS-OPTN-PR-1411S-0018

PATIENT
  Sex: Male

DRUGS (2)
  1. OPTISON [Suspect]
     Active Substance: ALBUMIN (HUMAN)
     Indication: PRODUCT USED FOR UNKNOWN INDICATION
     Dosage: DOSE NOT REPORTED
     Route: 065
     Dates: start: 20141028, end: 20141028
  2. OPTISON [Suspect]
     Active Substance: ALBUMIN (HUMAN)
     Indication: DIAGNOSTIC PROCEDURE

REACTIONS (3)
  - Heart rate decreased [Recovered/Resolved]
  - Malaise [Recovered/Resolved]
  - Dizziness [Recovered/Resolved]

NARRATIVE: CASE EVENT DATE: 20141028
